FAERS Safety Report 24548645 (Version 3)
Quarter: 2024Q4

REPORT INFORMATION
  Report Type: Report from Study
  Country: US (occurrence: US)
  Receive Date: 20241025
  Receipt Date: 20241116
  Transmission Date: 20250115
  Serious: Yes (Hospitalization)
  Sender: UNITED THERAPEUTICS
  Company Number: US-UNITED THERAPEUTICS-UNT-2024-033077

PATIENT
  Sex: Female

DRUGS (7)
  1. TREPROSTINIL SODIUM [Suspect]
     Active Substance: TREPROSTINIL SODIUM
     Indication: Pulmonary arterial hypertension
     Dosage: 0.016 ?G/KG, CONTINUING
     Route: 041
  2. TREPROSTINIL SODIUM [Suspect]
     Active Substance: TREPROSTINIL SODIUM
     Dosage: 0.018 ?G/KG, CONTINUING
     Route: 041
  3. TREPROSTINIL SODIUM [Suspect]
     Active Substance: TREPROSTINIL SODIUM
     Dosage: 0.021 ?G/KG, CONTINUING
     Route: 041
  4. TREPROSTINIL SODIUM [Suspect]
     Active Substance: TREPROSTINIL SODIUM
     Dosage: UNK, CONTINUING
     Route: 041
  5. AMBRISENTAN [Concomitant]
     Active Substance: AMBRISENTAN
     Indication: Product used for unknown indication
     Dosage: UNK
  6. SILDENAFIL [Concomitant]
     Active Substance: SILDENAFIL
     Indication: Product used for unknown indication
     Dosage: UNK
  7. CORTISONE [Concomitant]
     Active Substance: CORTISONE
     Indication: Arthralgia
     Dosage: UNK

REACTIONS (10)
  - Limb mass [Unknown]
  - Contusion [Unknown]
  - Pain [Unknown]
  - Feeling hot [Unknown]
  - Neck pain [Unknown]
  - Chest pain [Unknown]
  - Faeces discoloured [Unknown]
  - Arthralgia [Not Recovered/Not Resolved]
  - Fatigue [Unknown]
  - Illness [Unknown]

NARRATIVE: CASE EVENT DATE: 20240101
